FAERS Safety Report 5789087-1 (Version None)
Quarter: 2008Q2

REPORT INFORMATION
  Report Type: 
  Country: None (occurrence: None)
  Receive Date: 20080626
  Receipt Date: 20071210
  Transmission Date: 20081010
  Serious: No
  Sender: FDA-Public Use
  Company Number: US-ASTRAZENECA-2007UW28050

PATIENT
  Age: 56 Year
  Sex: Male
  Weight: 70.3 kg

DRUGS (5)
  1. PULMICORT FLEXHALER [Suspect]
     Indication: ASTHMA
     Route: 055
  2. PULMICORT FLEXHALER [Suspect]
     Route: 055
  3. PULMICORT FLEXHALER [Suspect]
     Route: 055
  4. SUPPLEMENTS [Concomitant]
  5. ASPIRIN [Concomitant]

REACTIONS (3)
  - DRUG INEFFECTIVE [None]
  - THROAT IRRITATION [None]
  - THROAT TIGHTNESS [None]
